FAERS Safety Report 7573735-X (Version None)
Quarter: 2011Q2

REPORT INFORMATION
  Report Type: 
  Country: None (occurrence: None)
  Receive Date: 20110621
  Receipt Date: 20110610
  Transmission Date: 20111010
  Serious: Yes (Hospitalization, Other)
  Sender: FDA-Public Use
  Company Number: 2010SP057052

PATIENT
  Age: 43 Year
  Sex: Female
  Weight: 60.3284 kg

DRUGS (3)
  1. NUVARING [Suspect]
     Indication: CONTRACEPTION
     Dates: start: 20070101
  2. NUVARING [Suspect]
     Indication: CONTRACEPTION
     Dates: start: 20080304, end: 20081106
  3. CITALOPRAM [Concomitant]

REACTIONS (9)
  - SUICIDAL IDEATION [None]
  - JOINT SPRAIN [None]
  - FATIGUE [None]
  - PULMONARY EMBOLISM [None]
  - EXERCISE TOLERANCE DECREASED [None]
  - STRESS [None]
  - JOINT SWELLING [None]
  - APHASIA [None]
  - PNEUMONIA [None]
